FAERS Safety Report 13905871 (Version 1)
Quarter: 2017Q3

REPORT INFORMATION
  Report Type: Spontaneous
  Country: US (occurrence: US)
  Receive Date: 20170825
  Receipt Date: 20170825
  Transmission Date: 20171127
  Serious: Yes (Other)
  Sender: FDA-Public Use
  Company Number: US-PFIZER INC-2017358156

PATIENT
  Age: 63 Year
  Sex: Male

DRUGS (2)
  1. LABETALOL [Concomitant]
     Active Substance: LABETALOL\LABETALOL HYDROCHLORIDE
     Indication: HYPERTENSIVE CRISIS
     Dosage: UNK
  2. DEXTROSE. [Suspect]
     Active Substance: DEXTROSE
     Indication: MEDICATION DILUTION
     Dosage: UNK (4 LITERS OF 5% DEXTROSE SOLUTION)
     Route: 041

REACTIONS (2)
  - Hyponatraemia [Recovering/Resolving]
  - Encephalopathy [Recovering/Resolving]
